FAERS Safety Report 10143625 (Version 1)
Quarter: 2014Q2

REPORT INFORMATION
  Report Type: Spontaneous
  Country: US (occurrence: US)
  Receive Date: 20140430
  Receipt Date: 20140430
  Transmission Date: 20141212
  Serious: No
  Sender: FDA-Public Use
  Company Number: US-PFIZER INC-2014119217

PATIENT
  Age: 43 Year
  Sex: Male
  Weight: 126.98 kg

DRUGS (6)
  1. DILANTIN [Suspect]
     Indication: CONVULSION
     Dosage: 500 MG, 1X/DAY
     Route: 048
  2. DILANTIN [Suspect]
     Dosage: 200MG IN MORNING AND 500MG AT NIGHT
     Route: 048
  3. ACCUPRIL [Concomitant]
     Indication: HYPERTENSION
     Dosage: UNK
  4. LIPITOR [Concomitant]
     Indication: BLOOD CHOLESTEROL INCREASED
     Dosage: 5 MG, UNK
  5. CALTRATE [Concomitant]
     Indication: BONE DISORDER
     Dosage: UNK
  6. CENTRUM SILVER [Concomitant]
     Dosage: UNK

REACTIONS (5)
  - Weight increased [Unknown]
  - Drug ineffective [Recovered/Resolved]
  - Anticonvulsant drug level decreased [Unknown]
  - Somnolence [Unknown]
  - Apathy [Unknown]
